FAERS Safety Report 24682627 (Version 1)
Quarter: 2024Q4

REPORT INFORMATION
  Report Type: Other
  Country: AU (occurrence: AU)
  Receive Date: 20241130
  Receipt Date: 20241130
  Transmission Date: 20250115
  Serious: Yes (Other)
  Sender: DEXCEL
  Company Number: AU-DEXPHARM-2024-4578

PATIENT
  Age: 78 Year
  Sex: Female

DRUGS (10)
  1. SOTALOL [Suspect]
     Active Substance: SOTALOL
     Indication: Atrial fibrillation
     Dosage: 1620 MG/DAY
  2. ESOMEPRAZOLE [Suspect]
     Active Substance: ESOMEPRAZOLE
  3. CANDESARTAN CILEXETIL\HYDROCHLOROTHIAZIDE [Suspect]
     Active Substance: CANDESARTAN CILEXETIL\HYDROCHLOROTHIAZIDE
  4. RIVAROXABAN [Suspect]
     Active Substance: RIVAROXABAN
  5. SPIRONOLACTONE [Suspect]
     Active Substance: SPIRONOLACTONE
  6. EZETIMIBE [Suspect]
     Active Substance: EZETIMIBE
  7. ATORVASTATIN [Suspect]
     Active Substance: ATORVASTATIN
  8. LEVOTHYROXINE [Suspect]
     Active Substance: LEVOTHYROXINE
  9. ALBUTEROL [Suspect]
     Active Substance: ALBUTEROL
  10. BUDESONIDE\FORMOTEROL [Suspect]
     Active Substance: BUDESONIDE\FORMOTEROL

REACTIONS (1)
  - Electrocardiogram QT prolonged [Unknown]
